FAERS Safety Report 7371328-0 (Version None)
Quarter: 2011Q1

REPORT INFORMATION
  Report Type: 
  Country: None (occurrence: None)
  Receive Date: 20110318
  Receipt Date: 20110318
  Transmission Date: 20110831
  Serious: Yes (Hospitalization)
  Sender: FDA-Public Use
  Company Number: None

PATIENT
  Sex: Male
  Weight: 101.8 kg

DRUGS (2)
  1. CARBOPLATIN [Suspect]
     Dosage: 1424 MG
     Dates: end: 20110105
  2. TAXOL [Suspect]
     Dosage: 878 MG
     Dates: end: 20110105

REACTIONS (5)
  - FATIGUE [None]
  - COUGH [None]
  - HAEMATOCRIT DECREASED [None]
  - DYSPNOEA [None]
  - HAEMOGLOBIN DECREASED [None]
